FAERS Safety Report 5238288-X (Version None)
Quarter: 2007Q1

REPORT INFORMATION
  Report Type: 
  Country: None (occurrence: None)
  Receive Date: 20070209
  Receipt Date: 20070209
  Transmission Date: 20070707
  Serious: Yes (Other)
  Sender: FDA-Public Use
  Company Number: None

PATIENT
  Age: 50 Year
  Sex: Female
  Weight: 61.2356 kg

DRUGS (1)
  1. DURAGESIC-100 [Suspect]
     Indication: NEUROPATHY
     Dosage: 1 PATCH EVERY 3 DAYS TRANSDERMAL
     Route: 062

REACTIONS (3)
  - DRUG WITHDRAWAL SYNDROME [None]
  - PHARMACEUTICAL PRODUCT COMPLAINT [None]
  - POOR QUALITY DRUG ADMINISTERED [None]
